FAERS Safety Report 6024460-8 (Version None)
Quarter: 2008Q4

REPORT INFORMATION
  Report Type: 
  Country: None (occurrence: None)
  Receive Date: 20081231
  Receipt Date: 20081226
  Transmission Date: 20090506
  Serious: Yes (Death, Hospitalization)
  Sender: FDA-Public Use
  Company Number: PHHY2008MX33366

PATIENT
  Age: 44 Year
  Sex: Male

DRUGS (1)
  1. ZELMAC [Suspect]
     Indication: IRRITABLE BOWEL SYNDROME
     Dosage: 1 TAB/DAY
     Dates: start: 20080301, end: 20080401

REACTIONS (1)
  - NEOPLASM MALIGNANT [None]
